FAERS Safety Report 12982012 (Version 4)
Quarter: 2018Q1

REPORT INFORMATION
  Report Type: Report from Study
  Country: VE (occurrence: VE)
  Receive Date: 20161129
  Receipt Date: 20180215
  Transmission Date: 20180508
  Serious: Yes (Death, Life-Threatening, Hospitalization, Other)
  Sender: FDA-Public Use
  Company Number: VE-INCYTE CORPORATION-2016IN007460

PATIENT

DRUGS (5)
  1. JAKAVI [Suspect]
     Active Substance: RUXOLITINIB
     Dosage: 2 DF, QD (2 DAILY 40 MG/ ONE IN THE MORNING AND 1 IN THE AFTERNOON)
     Route: 048
  2. EPOETIN BETA [Concomitant]
     Active Substance: ERYTHROPOIETIN
     Indication: MYELOFIBROSIS
     Dosage: 30 CM3, QW
     Route: 065
  3. EPOETIN BETA [Concomitant]
     Active Substance: ERYTHROPOIETIN
     Indication: HAEMOGLOBIN DECREASED
  4. JAKAVI [Suspect]
     Active Substance: RUXOLITINIB
     Dosage: 30 MG, QD
     Route: 048
  5. JAKAVI [Suspect]
     Active Substance: RUXOLITINIB
     Indication: MYELOFIBROSIS
     Dosage: 20 MG, QD
     Route: 048
     Dates: start: 2014

REACTIONS (18)
  - Blood disorder [Recovered/Resolved]
  - Haemoglobin decreased [Recovered/Resolved]
  - Death [Fatal]
  - Asthenia [Recovered/Resolved]
  - Abdominal pain [Unknown]
  - Haemoglobin decreased [Unknown]
  - Malaise [Unknown]
  - Decreased immune responsiveness [Recovered/Resolved]
  - General physical health deterioration [Unknown]
  - Vasculitis [Recovered/Resolved]
  - Myelofibrosis [Unknown]
  - Malaise [Recovered/Resolved]
  - Pyrexia [Unknown]
  - Hepatitis [Recovered/Resolved]
  - Splenomegaly [Unknown]
  - Diarrhoea [Recovered/Resolved]
  - Diarrhoea [Unknown]
  - Asthenia [Unknown]
